FAERS Safety Report 14392510 (Version 1)
Quarter: 2018Q1

REPORT INFORMATION
  Report Type: Spontaneous
  Country: AU (occurrence: AU)
  Receive Date: 20180116
  Receipt Date: 20180116
  Transmission Date: 20180509
  Serious: Yes (Other)
  Sender: FDA-Public Use
  Company Number: AU-PFIZER INC-2018014355

PATIENT
  Sex: Female

DRUGS (1)
  1. DEPO-RALOVERA [Suspect]
     Active Substance: MEDROXYPROGESTERONE ACETATE
     Dosage: UNK
     Dates: start: 201610

REACTIONS (3)
  - Disease recurrence [Unknown]
  - Scar [Unknown]
  - Acne cystic [Unknown]
